FAERS Safety Report 5812522-7 (Version None)
Quarter: 2008Q3

REPORT INFORMATION
  Report Type: 
  Country: None (occurrence: None)
  Receive Date: 20080711
  Receipt Date: 20080630
  Transmission Date: 20090109
  Serious: Yes (Hospitalization)
  Sender: FDA-Public Use
  Company Number: 8033939

PATIENT
  Age: 69 Year
  Sex: Female

DRUGS (4)
  1. XYZAL [Suspect]
     Indication: COUGH
     Dosage: 1 DF /D PO
     Route: 048
     Dates: start: 20080421, end: 20080502
  2. XYZAL [Suspect]
     Indication: HYPERSENSITIVITY
     Dosage: 1 DF /D PO
     Route: 048
     Dates: start: 20080421, end: 20080502
  3. POTASSIUM CHLORIDE [Concomitant]
  4. INDAPAMIDE [Concomitant]

REACTIONS (5)
  - BRONCHIAL WALL THICKENING [None]
  - BRONCHITIS [None]
  - BRONCHOPNEUMOPATHY [None]
  - CHEST PAIN [None]
  - OEDEMA PERIPHERAL [None]
